FAERS Safety Report 13957066 (Version 1)
Quarter: 2017Q3

REPORT INFORMATION
  Report Type: Spontaneous
  Country: US (occurrence: US)
  Receive Date: 20170912
  Receipt Date: 20170912
  Transmission Date: 20171128
  Serious: No
  Sender: FDA-Public Use
  Company Number: US-BAUSCH-BL-2015-013728

PATIENT
  Age: 41 Year
  Sex: Male
  Weight: 25.95 kg

DRUGS (7)
  1. ATIVAN [Concomitant]
     Active Substance: LORAZEPAM
     Indication: ANXIETY
     Route: 048
  2. LOTEMAX [Concomitant]
     Active Substance: LOTEPREDNOL ETABONATE
     Indication: PRODUCT USED FOR UNKNOWN INDICATION
     Dates: start: 20111201
  3. REMERON [Concomitant]
     Active Substance: MIRTAZAPINE
     Indication: DEPRESSION
     Route: 048
  4. BACITRACIN OINTMENT [Concomitant]
     Indication: PRODUCT USED FOR UNKNOWN INDICATION
     Dates: start: 20111201
  5. SODIUM SULFACETAMIDE 10% [Concomitant]
     Indication: PRODUCT USED FOR UNKNOWN INDICATION
     Dates: start: 20111130
  6. PODOFILOX TOPICAL SOLUTION 0.5% [Suspect]
     Active Substance: PODOFILOX
     Indication: ANOGENITAL WARTS
     Route: 061
     Dates: start: 201109, end: 20111129
  7. CONDYLOX [Concomitant]
     Active Substance: PODOFILOX
     Indication: PRODUCT USED FOR UNKNOWN INDICATION

REACTIONS (7)
  - Corneal disorder [Not Recovered/Not Resolved]
  - Vision blurred [Not Recovered/Not Resolved]
  - Eye irritation [Recovered/Resolved]
  - Accidental exposure to product [Recovered/Resolved]
  - Eye discharge [Unknown]
  - Visual impairment [Not Recovered/Not Resolved]
  - Visual impairment [Not Recovered/Not Resolved]

NARRATIVE: CASE EVENT DATE: 20111129
